FAERS Safety Report 15955591 (Version 4)
Quarter: 2022Q2

REPORT INFORMATION
  Report Type: Report from Study
  Country: IN (occurrence: IN)
  Receive Date: 20190213
  Receipt Date: 20220507
  Transmission Date: 20220721
  Serious: Yes (Other)
  Sender: FDA-Public Use
  Company Number: PHHY2019IN030792

PATIENT
  Age: 64 Year
  Sex: Female

DRUGS (5)
  1. TASIGNA [Suspect]
     Active Substance: NILOTINIB
     Indication: Chronic myeloid leukaemia
     Dosage: 300 MG, BID
     Route: 048
     Dates: start: 20130830, end: 20190204
  2. TASIGNA [Suspect]
     Active Substance: NILOTINIB
     Dosage: 400 MG, BID
     Route: 048
     Dates: start: 20190205
  3. URIBID [Concomitant]
     Indication: Product used for unknown indication
     Dosage: 100 MG, BID
     Route: 048
  4. COBADEX [Concomitant]
     Indication: Product used for unknown indication
     Dosage: UNK, QD
     Route: 048
  5. CALCIUM CARBONATE\CHOLECALCIFEROL [Concomitant]
     Active Substance: CALCIUM CARBONATE\CHOLECALCIFEROL
     Indication: Product used for unknown indication
     Dosage: 500 MG, BID
     Route: 048

REACTIONS (6)
  - White blood cell count increased [Unknown]
  - Pyrexia [Not Recovered/Not Resolved]
  - Hyperthermia [Recovered/Resolved]
  - Hypertension [Unknown]
  - Product dose omission issue [Recovered/Resolved]
  - Loss of therapeutic response [Unknown]

NARRATIVE: CASE EVENT DATE: 20190129
